FAERS Safety Report 19373218 (Version 13)
Quarter: 2022Q3

REPORT INFORMATION
  Report Type: Other
  Country: GB (occurrence: GB)
  Receive Date: 20210604
  Receipt Date: 20220808
  Transmission Date: 20221027
  Serious: Yes (Hospitalization, Other)
  Sender: FDA-Public Use
  Company Number: GB-ROCHE-2660214

PATIENT
  Age: 75 Year
  Sex: Female
  Weight: 56.9 kg

DRUGS (32)
  1. ATEZOLIZUMAB [Suspect]
     Active Substance: ATEZOLIZUMAB
     Indication: Small cell lung cancer extensive stage
     Dosage: 1200 MILLIGRAM, Q3W?ON 17/AUG/2020 SHE RECEIVED MOST RECENT DOSES OF ATEZOLIZUMAB.
     Route: 041
     Dates: start: 20200615
  2. ATEZOLIZUMAB [Suspect]
     Active Substance: ATEZOLIZUMAB
     Dosage: ON 17/AUG/2020 SHE RECEIVED MOST RECENT DOSES OF ATEZOLIZUMAB.
     Route: 042
     Dates: start: 20200706
  3. ATEZOLIZUMAB [Suspect]
     Active Substance: ATEZOLIZUMAB
     Dosage: ON 17/AUG/2020 SHE RECEIVED MOST RECENT DOSES OF ATEZOLIZUMAB.
     Route: 042
     Dates: start: 20200727
  4. ATEZOLIZUMAB [Suspect]
     Active Substance: ATEZOLIZUMAB
     Dosage: ON 17/AUG/2020 SHE RECEIVED MOST RECENT DOSES OF ATEZOLIZUMAB.
     Route: 042
     Dates: start: 20200817
  5. BEVACIZUMAB [Suspect]
     Active Substance: BEVACIZUMAB
     Indication: Small cell lung cancer extensive stage
     Route: 065
  6. CARBOPLATIN [Suspect]
     Active Substance: CARBOPLATIN
     Indication: Small cell lung cancer extensive stage
     Route: 065
  7. CARBOPLATIN [Suspect]
     Active Substance: CARBOPLATIN
     Route: 065
     Dates: start: 20200615
  8. ETOPOSIDE [Suspect]
     Active Substance: ETOPOSIDE
     Indication: Small cell lung cancer extensive stage
     Dosage: PREVIOUSLY MENTIONED 100 MG/M2 ONCE
     Route: 042
     Dates: start: 20200615, end: 20200617
  9. ETOPOSIDE [Suspect]
     Active Substance: ETOPOSIDE
     Dosage: 100 MG/M2 INTRAVENOUS, EVERY 0.5 DAY?DATE OF MOST RECENT DOSE OF ETOPOSIDE: 19/AUG/2020
     Route: 042
     Dates: start: 20200818
  10. ETOPOSIDE [Suspect]
     Active Substance: ETOPOSIDE
     Dosage: 100 MG/M2
     Route: 065
     Dates: start: 20200728, end: 20200729
  11. ETOPOSIDE [Suspect]
     Active Substance: ETOPOSIDE
     Route: 048
     Dates: start: 20200707
  12. PACLITAXEL [Suspect]
     Active Substance: PACLITAXEL
     Indication: Small cell lung cancer extensive stage
     Route: 065
  13. CALCIUM CARBONATE\CHOLECALCIFEROL [Concomitant]
     Active Substance: CALCIUM CARBONATE\CHOLECALCIFEROL
     Indication: Product used for unknown indication
     Dates: start: 20200902
  14. BUPRENORPHINE [Concomitant]
     Active Substance: BUPRENORPHINE
     Dates: start: 20200401
  15. CO-AMILOFRUSE [Concomitant]
     Active Substance: AMILORIDE\FUROSEMIDE
     Dates: start: 20200902
  16. DICLOFENAC [Concomitant]
     Active Substance: DICLOFENAC
     Dates: start: 20200401
  17. DOCUSATE SODIUM [Concomitant]
     Active Substance: DOCUSATE SODIUM
     Route: 065
  18. BECLOMETHASONE\FORMOTEROL [Concomitant]
     Active Substance: BECLOMETHASONE\FORMOTEROL
     Indication: Chronic obstructive pulmonary disease
     Dates: start: 20200902
  19. FUROSEMIDE [Concomitant]
     Active Substance: FUROSEMIDE
     Route: 065
     Dates: start: 20200902
  20. GABAPENTIN [Concomitant]
     Active Substance: GABAPENTIN
     Dates: start: 20200401
  21. LANSOPRAZOLE [Concomitant]
     Active Substance: LANSOPRAZOLE
     Indication: Gastrooesophageal reflux disease
  22. POLYETHYLENE GLYCOL 3350\POTASSIUM CHLORIDE\SODIUM BICARBONATE\SODIUM [Concomitant]
     Active Substance: POLYETHYLENE GLYCOL 3350\POTASSIUM CHLORIDE\SODIUM BICARBONATE\SODIUM CHLORIDE
     Dates: start: 20200902
  23. MIRABEGRON [Concomitant]
     Active Substance: MIRABEGRON
     Indication: Urinary retention
     Dates: start: 20130101
  24. MORPHINE SULFATE [Concomitant]
     Active Substance: MORPHINE SULFATE
     Dates: start: 20200501
  25. SENNA [Concomitant]
     Active Substance: SENNA LEAF\SENNOSIDES\SENNOSIDES A AND B
     Dates: start: 20200902
  26. SPIRIVA [Concomitant]
     Active Substance: TIOTROPIUM BROMIDE MONOHYDRATE
     Indication: Chronic obstructive pulmonary disease
     Dates: start: 20200301
  27. TIOTROPIUM [Concomitant]
     Active Substance: TIOTROPIUM
     Dates: start: 20200902
  28. HERBALS\TURMERIC [Concomitant]
     Active Substance: HERBALS\TURMERIC
     Dates: start: 20200727, end: 20200727
  29. ALBUTEROL [Concomitant]
     Active Substance: ALBUTEROL
     Indication: Chronic obstructive pulmonary disease
  30. CISPLATIN [Concomitant]
     Active Substance: CISPLATIN
  31. ZOLEDRONIC ACID [Concomitant]
     Active Substance: ZOLEDRONIC ACID
     Indication: Prophylaxis
     Dates: start: 20170101
  32. ONDANSETRON [Concomitant]
     Active Substance: ONDANSETRON
     Dates: start: 20200615

REACTIONS (7)
  - Lower respiratory tract infection [Recovered/Resolved]
  - Pneumonia [Recovered/Resolved]
  - Deep vein thrombosis [Not Recovered/Not Resolved]
  - Alopecia [Not Recovered/Not Resolved]
  - Anaemia [Recovered/Resolved]
  - Back pain [Not Recovered/Not Resolved]
  - Fall [Unknown]

NARRATIVE: CASE EVENT DATE: 20200703
